FAERS Safety Report 25872048 (Version 1)
Quarter: 2025Q4

REPORT INFORMATION
  Report Type: Spontaneous
  Country: US (occurrence: US)
  Receive Date: 20251002
  Receipt Date: 20251002
  Transmission Date: 20260118
  Serious: No
  Sender: ALEXION PHARMACEUTICALS
  Company Number: US-ASTRAZENECA-202509USA026069US

PATIENT
  Age: 18 Year
  Sex: Female

DRUGS (2)
  1. FARXIGA [Suspect]
     Active Substance: DAPAGLIFLOZIN PROPANEDIOL
     Indication: Product used for unknown indication
     Dosage: UNK, QD
     Route: 065
  2. LUPKYNIS [Suspect]
     Active Substance: VOCLOSPORIN
     Indication: Systemic lupus erythematosus
     Dosage: 23.7 MILLIGRAM, BID
     Dates: start: 20250529

REACTIONS (6)
  - Insomnia [Unknown]
  - Back pain [Unknown]
  - Pain in extremity [Unknown]
  - Influenza [Unknown]
  - Tremor [Unknown]
  - Headache [Unknown]
